FAERS Safety Report 7897565-4 (Version None)
Quarter: 2011Q4

REPORT INFORMATION
  Report Type: 
  Country: None (occurrence: None)
  Receive Date: 20111107
  Receipt Date: 20111028
  Transmission Date: 20120403
  Serious: Yes (Hospitalization)
  Sender: FDA-Public Use
  Company Number: US-ELI_LILLY_AND_COMPANY-US201109006820

PATIENT
  Age: 55 Year
  Sex: Female
  Weight: 88.435 kg

DRUGS (6)
  1. EFFIENT [Suspect]
     Indication: STENT PLACEMENT
     Dosage: 10 MG, QD
     Route: 048
     Dates: start: 20110710, end: 20111001
  2. NITRO                              /00003201/ [Concomitant]
  3. METOPROLOL TARTRATE [Concomitant]
  4. FLEXERIL [Concomitant]
  5. ASPIRIN [Concomitant]
     Dosage: 81 MG, UNKNOWN
  6. PLAVIX [Concomitant]

REACTIONS (2)
  - MYOCARDIAL ISCHAEMIA [None]
  - RASH [None]
